FAERS Safety Report 16302245 (Version 6)
Quarter: 2021Q2

REPORT INFORMATION
  Report Type: Spontaneous
  Country: US (occurrence: US)
  Receive Date: 20190512
  Receipt Date: 20210513
  Transmission Date: 20210716
  Serious: Yes (Other)
  Sender: FDA-Public Use
  Company Number: US-UCBSA-2019018727

PATIENT
  Age: 75 Year
  Sex: Male

DRUGS (1)
  1. CIMZIA [Suspect]
     Active Substance: CERTOLIZUMAB PEGOL
     Indication: CROHN^S DISEASE
     Dosage: 400 MILLIGRAM, EV 4 WEEKS
     Route: 058
     Dates: start: 20170803

REACTIONS (3)
  - Skin disorder [Not Recovered/Not Resolved]
  - Rash [Unknown]
  - Skin cancer [Unknown]

NARRATIVE: CASE EVENT DATE: 2017
